FAERS Safety Report 17629144 (Version 1)
Quarter: 2020Q2

REPORT INFORMATION
  Report Type: Report from Study
  Country: CO (occurrence: CO)
  Receive Date: 20200406
  Receipt Date: 20200406
  Transmission Date: 20200713
  Serious: Yes (Death)
  Sender: FDA-Public Use
  Company Number: CO-ROCHE-2573907

PATIENT
  Age: 80 Year
  Sex: Female
  Weight: 38 kg

DRUGS (2)
  1. BENDAMUSTINE [Concomitant]
     Active Substance: BENDAMUSTINE
     Indication: NON-HODGKIN^S LYMPHOMA
  2. MABTHERA [Suspect]
     Active Substance: RITUXIMAB
     Indication: NON-HODGKIN^S LYMPHOMA
     Route: 042

REACTIONS (2)
  - Cardio-respiratory arrest [Fatal]
  - Chest pain [Unknown]

NARRATIVE: CASE EVENT DATE: 20200312
